FAERS Safety Report 20005579 (Version 3)
Quarter: 2021Q4

REPORT INFORMATION
  Report Type: Report from Study
  Country: US (occurrence: None)
  Receive Date: 20211027
  Receipt Date: 20211216
  Transmission Date: 20220303
  Serious: No
  Sender: FDA-Public Use
  Company Number: US-MERCK HEALTHCARE KGAA-9275507

PATIENT
  Age: 57 Year
  Sex: Female

DRUGS (5)
  1. REBIF [Suspect]
     Active Substance: INTERFERON BETA-1A
     Indication: Multiple sclerosis
     Dates: start: 20130927, end: 20150909
  2. REBIF [Suspect]
     Active Substance: INTERFERON BETA-1A
     Dates: start: 20160205, end: 20170213
  3. REBIF [Suspect]
     Active Substance: INTERFERON BETA-1A
     Dates: start: 20170728, end: 20181022
  4. REBIF [Suspect]
     Active Substance: INTERFERON BETA-1A
     Dates: start: 20181206, end: 20210801
  5. REBIF [Suspect]
     Active Substance: INTERFERON BETA-1A
     Route: 058
     Dates: start: 20211016

REACTIONS (3)
  - Diverticulum [Unknown]
  - Abdominal distension [Unknown]
  - Stress [Unknown]

NARRATIVE: CASE EVENT DATE: 20210101
